FAERS Safety Report 7217431 (Version 2)
Quarter: 2015Q3

REPORT INFORMATION
  Report Type: Spontaneous
  Country: FR (occurrence: None)
  Receive Date: 20091127
  Receipt Date: 20150917
  Transmission Date: 20151125
  Serious: Yes (Death, Life-Threatening, Hospitalization, Other)
  Sender: FDA-Public Use
  Company Number: 2009-04855

PATIENT
  Age: 81 Year
  Sex: Male

DRUGS (2)
  1. VELCADE [Suspect]
     Active Substance: BORTEZOMIB
     Indication: PLASMA CELL MYELOMA
     Dosage: INTRAVENOUS : 0.7 MG/M2, INTRAVENOUS
     Route: 042
     Dates: start: 200907
  2. CORTANCYL [Concomitant]
     Active Substance: PREDNISONE

REACTIONS (9)
  - Blood calcium decreased [None]
  - Neuropathy peripheral [None]
  - Weight decreased [None]
  - Fall [None]
  - Blood pressure systolic increased [None]
  - Coma [None]
  - General physical condition abnormal [None]
  - Disorientation [None]
  - Posterior reversible encephalopathy syndrome [None]

NARRATIVE: CASE EVENT DATE: 2009
